FAERS Safety Report 4800806-0 (Version None)
Quarter: 2005Q4

REPORT INFORMATION
  Report Type: 
  Country: None (occurrence: None)
  Receive Date: 20051017
  Receipt Date: 20051005
  Transmission Date: 20060501
  Serious: Yes (Hospitalization, Other)
  Sender: FDA-Public Use
  Company Number: US-MERCK-0510USA03398

PATIENT
  Age: 62 Year
  Sex: Male
  Weight: 83 kg

DRUGS (4)
  1. VIOXX [Suspect]
     Indication: ARTHRITIS
     Route: 048
     Dates: start: 20001127, end: 20040910
  2. VIOXX [Suspect]
     Route: 048
     Dates: start: 20040910, end: 20040930
  3. VIOXX [Suspect]
     Indication: BACK PAIN
     Route: 048
     Dates: start: 20001127, end: 20040910
  4. VIOXX [Suspect]
     Route: 048
     Dates: start: 20040910, end: 20040930

REACTIONS (3)
  - CORONARY ARTERY DISEASE [None]
  - MENTAL DISORDER [None]
  - MYOCARDIAL INFARCTION [None]
